FAERS Safety Report 20146006 (Version 2)
Quarter: 2021Q4

REPORT INFORMATION
  Report Type: Spontaneous
  Country: JP (occurrence: None)
  Receive Date: 20211203
  Receipt Date: 20211210
  Transmission Date: 20220303
  Serious: Yes (Death, Other)
  Sender: FDA-Public Use
  Company Number: 2021A851055

PATIENT
  Age: 77 Year
  Sex: Male

DRUGS (5)
  1. FASENRA [Suspect]
     Active Substance: BENRALIZUMAB
     Indication: Asthma
     Dosage: DOSE UNKNOWN
     Route: 058
     Dates: start: 2018
  2. FASENRA [Suspect]
     Active Substance: BENRALIZUMAB
     Indication: Asthma
     Dosage: DOSE UNKNOWN30.0MG UNKNOWN
     Route: 058
     Dates: start: 2019, end: 20200811
  3. FASENRA [Suspect]
     Active Substance: BENRALIZUMAB
     Indication: Asthma
     Dosage: 30.0MG UNKNOWN
     Route: 058
  4. ADRENAL [Concomitant]
     Active Substance: EPINEPHRINE
     Indication: Asthma
     Dosage: DOSE UNKNOWN, USED CONTINUOUSLY
     Route: 048
  5. DUPIXENT [Concomitant]
     Active Substance: DUPILUMAB
     Indication: Asthma
     Dosage: DOSE UNKNOWN
     Route: 065
     Dates: start: 2019

REACTIONS (3)
  - Interstitial lung disease [Fatal]
  - Asthma [Unknown]
  - Atrial fibrillation [Unknown]

NARRATIVE: CASE EVENT DATE: 20200101
